FAERS Safety Report 6375841-4 (Version None)
Quarter: 2009Q3

REPORT INFORMATION
  Report Type: 
  Country: None (occurrence: None)
  Receive Date: 20090918
  Receipt Date: 20090907
  Transmission Date: 20100115
  Serious: Yes (Hospitalization)
  Sender: FDA-Public Use
  Company Number: 2009-03654

PATIENT
  Age: 74 Year
  Sex: Female

DRUGS (2)
  1. VELCADE [Suspect]
     Indication: MULTIPLE MYELOMA
     Dates: start: 20090505, end: 20090626
  2. DEXAMETHASONE 0.5MG TAB [Concomitant]

REACTIONS (2)
  - DRUG INEFFECTIVE [None]
  - SEPSIS [None]
